FAERS Safety Report 9737771 (Version 1)
Quarter: 2013Q4

REPORT INFORMATION
  Report Type: Spontaneous
  Country: US (occurrence: US)
  Receive Date: 20131207
  Receipt Date: 20131207
  Transmission Date: 20140711
  Serious: No
  Sender: FDA-Public Use
  Company Number: US-B.I. PHARMACEUTICALS,INC./RIDGEFIELD-2013-BI-38550BP

PATIENT
  Age: 64 Year
  Sex: Female

DRUGS (3)
  1. PRADAXA [Suspect]
     Indication: ATRIAL FIBRILLATION
     Dosage: 300 MG
     Route: 048
     Dates: start: 201103, end: 201301
  2. PRADAXA [Suspect]
     Indication: CEREBROVASCULAR ACCIDENT PROPHYLAXIS
     Dosage: 150 MG
     Route: 048
     Dates: start: 201301
  3. PRADAXA [Suspect]
     Dosage: 75 MG
     Route: 048
     Dates: start: 201301

REACTIONS (3)
  - Epistaxis [Recovered/Resolved]
  - Epistaxis [Recovered/Resolved]
  - Nasal dryness [Recovered/Resolved]
